FAERS Safety Report 20819649 (Version 2)
Quarter: 2022Q2

REPORT INFORMATION
  Report Type: Report from Study
  Country: US (occurrence: None)
  Receive Date: 20220512
  Receipt Date: 20220524
  Transmission Date: 20220721
  Serious: Yes (Hospitalization, Other)
  Sender: FDA-Public Use
  Company Number: US-ROCHE-2572442

PATIENT
  Age: 79 Year
  Sex: Female
  Weight: 72.3 kg

DRUGS (3)
  1. BEVACIZUMAB [Suspect]
     Active Substance: BEVACIZUMAB
     Indication: Ovarian epithelial cancer
     Dosage: 10 MG/KG ON DAYS 1 AND 15, LAST ADMINISTERED DATE: 14/FEB/2020.
     Route: 042
     Dates: start: 20191220
  2. PACLITAXEL [Suspect]
     Active Substance: PACLITAXEL
     Indication: Ovarian epithelial cancer
     Dosage: PATIENT RECEIVED 80 MG/M2 , LAST ADMINISTERED DATE: 23/SEP/2020
     Route: 042
     Dates: start: 20191220
  3. PACLITAXEL [Suspect]
     Active Substance: PACLITAXEL
     Dosage: DOSE REDUCTION BEGAN 9/23/2020, 65 MG/M^2 LAST ADMINISTERED DATE: 21-FEB-2020
     Route: 042
     Dates: start: 20191220

REACTIONS (12)
  - Fatigue [Recovered/Resolved]
  - Dehydration [Recovered/Resolved]
  - Anaemia [Recovered/Resolved]
  - Ileus [Recovered/Resolved]
  - Small intestinal perforation [Recovered/Resolved]
  - Nausea [Recovering/Resolving]
  - Seizure [Recovered/Resolved]
  - Vomiting [Recovering/Resolving]
  - Myocardial infarction [Recovered/Resolved]
  - Peripheral sensory neuropathy [Unknown]
  - Hypotension [Unknown]
  - Hypertension [Unknown]

NARRATIVE: CASE EVENT DATE: 20200223
